FAERS Safety Report 23225125 (Version 1)
Quarter: 2023Q4

REPORT INFORMATION
  Report Type: Spontaneous
  Country: FR (occurrence: FR)
  Receive Date: 20231124
  Receipt Date: 20231124
  Transmission Date: 20240110
  Serious: Yes (Other)
  Sender: FDA-Public Use
  Company Number: None

PATIENT
  Age: 29 Year
  Sex: Male

DRUGS (1)
  1. FILGRASTIM [Suspect]
     Active Substance: FILGRASTIM
     Indication: Haematopoietic stem cell mobilisation
     Dosage: UNKNOWN DOSE

REACTIONS (1)
  - Pericarditis [Unknown]

NARRATIVE: CASE EVENT DATE: 20231002
